FAERS Safety Report 9664609 (Version 3)
Quarter: 2013Q4

REPORT INFORMATION
  Report Type: Report from Study
  Country: US (occurrence: US)
  Receive Date: 20131101
  Receipt Date: 20131115
  Transmission Date: 20140711
  Serious: Yes (Hospitalization)
  Sender: FDA-Public Use
  Company Number: US-ACTELION-A-NJ2012-63613

PATIENT
  Age: 75 Year
  Sex: Female

DRUGS (3)
  1. VENTAVIS [Suspect]
     Indication: PULMONARY ARTERIAL HYPERTENSION
     Dosage: 5MCG  6XDAY
     Route: 055
  2. ADCIRCA [Concomitant]
  3. PLAVIX [Concomitant]

REACTIONS (4)
  - Stent placement [Recovered/Resolved]
  - Pulmonary arterial hypertension [Recovered/Resolved]
  - Dyspnoea exertional [Unknown]
  - Dyspnoea [Unknown]
